FAERS Safety Report 5025477-2 (Version None)
Quarter: 2006Q2

REPORT INFORMATION
  Report Type: 
  Country: None (occurrence: None)
  Receive Date: 20060608
  Receipt Date: 20060602
  Transmission Date: 20061013
  Serious: Yes (Death)
  Sender: FDA-Public Use
  Company Number: S05-USA-02387-01

PATIENT
  Age: 86 Year
  Sex: Male
  Weight: 58.9676 kg

DRUGS (7)
  1. NAMENDA [Suspect]
     Indication: DEMENTIA ALZHEIMER'S TYPE
     Dates: start: 20041019, end: 20041020
  2. ACTOS [Concomitant]
  3. ASPIRIN [Concomitant]
  4. NITROGLYCERIN [Concomitant]
  5. ALBUTEROL [Concomitant]
  6. ARICEPT [Concomitant]
  7. VITAMIN E [Concomitant]

REACTIONS (3)
  - CARDIAC ARREST [None]
  - NAUSEA [None]
  - VOMITING [None]
